FAERS Safety Report 6843808-5 (Version None)
Quarter: 2010Q3

REPORT INFORMATION
  Report Type: 
  Country: None (occurrence: None)
  Receive Date: 20100715
  Receipt Date: 20100701
  Transmission Date: 20110219
  Serious: No
  Sender: FDA-Public Use
  Company Number: PHHY2010JP40016

PATIENT
  Sex: Female
  Weight: 51 kg

DRUGS (4)
  1. GLEEVEC [Suspect]
     Indication: CHRONIC MYELOID LEUKAEMIA
     Dosage: 400 MG/DAY
     Route: 048
     Dates: start: 20100317, end: 20100531
  2. GLEEVEC [Suspect]
     Dosage: 300 MG/DAY
     Route: 048
  3. ZYLORIC ^FRESENIUS^ [Concomitant]
     Dosage: 300 MG, UNK
     Route: 048
     Dates: start: 20100517, end: 20100531
  4. GASTER [Concomitant]
     Dosage: 40 MG, UNK
     Route: 048
     Dates: start: 20100517

REACTIONS (2)
  - PYREXIA [None]
  - RASH GENERALISED [None]
